FAERS Safety Report 6347917-9 (Version None)
Quarter: 2009Q3

REPORT INFORMATION
  Report Type: 
  Country: None (occurrence: None)
  Receive Date: 20090910
  Receipt Date: 20090901
  Transmission Date: 20100115
  Serious: Yes (Other)
  Sender: FDA-Public Use
  Company Number: PHHY2009IT32376

PATIENT
  Sex: Male

DRUGS (1)
  1. LESCOL [Suspect]
     Dosage: 80 MG DAILY
     Route: 048
     Dates: start: 20081001, end: 20090415

REACTIONS (3)
  - BLOOD CREATINE PHOSPHOKINASE INCREASED [None]
  - MUSCULOSKELETAL PAIN [None]
  - MYALGIA [None]
